FAERS Safety Report 18419335 (Version 1)
Quarter: 2020Q4

REPORT INFORMATION
  Report Type: Spontaneous
  Country: US (occurrence: US)
  Receive Date: 20201023
  Receipt Date: 20201023
  Transmission Date: 20210114
  Serious: Yes (Hospitalization)
  Sender: FDA-Public Use
  Company Number: US-009507513-2010USA008655

PATIENT
  Sex: Male

DRUGS (1)
  1. PROSCAR [Suspect]
     Active Substance: FINASTERIDE
     Dosage: ROUTE: CRUSHED VIA NASOGASTRIC (NG) TUBE

REACTIONS (2)
  - Wrong technique in product usage process [Unknown]
  - Adverse event [Unknown]
